FAERS Safety Report 6920880-5 (Version None)
Quarter: 2010Q3

REPORT INFORMATION
  Report Type: 
  Country: None (occurrence: None)
  Receive Date: 20100812
  Receipt Date: 20100806
  Transmission Date: 20110219
  Serious: Yes (Other)
  Sender: FDA-Public Use
  Company Number: US-GILEAD-2010-0030055

PATIENT
  Sex: Female

DRUGS (10)
  1. LETAIRIS [Suspect]
     Indication: COR PULMONALE CHRONIC
     Route: 048
     Dates: start: 20100331
  2. WARFARIN [Concomitant]
  3. ASPIRIN [Concomitant]
  4. HYDRALAZINE HCL [Concomitant]
  5. ATENOLOL [Concomitant]
  6. ISOSORBIDE [Concomitant]
  7. NITROGLYCERIN [Concomitant]
  8. VYTORIN [Concomitant]
  9. GLYBURIDE [Concomitant]
  10. CENTRUM SILVER [Concomitant]

REACTIONS (1)
  - HAEMORRHAGE [None]
